FAERS Safety Report 7103393-X (Version None)
Quarter: 2010Q4

REPORT INFORMATION
  Report Type: 
  Country: None (occurrence: None)
  Receive Date: 20101115
  Receipt Date: 20101105
  Transmission Date: 20110411
  Serious: Yes (Hospitalization, Other)
  Sender: FDA-Public Use
  Company Number: CHPA2010US17329

PATIENT
  Sex: Male

DRUGS (6)
  1. ACETYLSALICYLIC ACID SRT [Suspect]
     Dosage: UNK , UNK
     Route: 048
  2. ASTELIN [Suspect]
     Indication: MUCOUS MEMBRANE DISORDER
     Dosage: 1096 MCG (548 MCG, 2 IN 1 D)
     Route: 045
     Dates: start: 20101005, end: 20101006
  3. METOPROLOL [Concomitant]
     Indication: MYOCARDIAL INFARCTION
     Dosage: 100 MG (50 MG, 2 IN 1D)
     Route: 048
  4. DIOVAN [Concomitant]
     Indication: MYOCARDIAL INFARCTION
     Dosage: 80 MG (80 MG,1 IN 1D)
     Route: 048
  5. ZOCOR [Concomitant]
     Dosage: 20 MG (20 MG,1 IN 1 D)
     Route: 048
  6. MULTI-VITAMINS [Concomitant]
     Route: 048

REACTIONS (3)
  - CHEST DISCOMFORT [None]
  - HYPERTENSION [None]
  - PAIN IN JAW [None]
